FAERS Safety Report 19991036 (Version 1)
Quarter: 2021Q4

REPORT INFORMATION
  Report Type: Spontaneous
  Country: US (occurrence: US)
  Receive Date: 20211025
  Receipt Date: 20211025
  Transmission Date: 20220303
  Serious: No
  Sender: FDA-Public Use
  Company Number: None

PATIENT
  Age: 68 Year
  Sex: Female
  Weight: 94.5 kg

DRUGS (9)
  1. CAPECITABINE [Suspect]
     Active Substance: CAPECITABINE
     Indication: Breast cancer
     Dosage: ?          OTHER FREQUENCY:BID 14/21 DAYS;
     Route: 048
     Dates: start: 20211004
  2. ADVIL [Concomitant]
     Active Substance: IBUPROFEN
  3. Calcium Oyster Shell [Concomitant]
  4. VITAMINS [Concomitant]
     Active Substance: VITAMINS
  5. EXCEDRIN MIGRAINE [Concomitant]
     Active Substance: ACETAMINOPHEN\ASPIRIN\CAFFEINE
  6. FEMARA [Concomitant]
     Active Substance: LETROZOLE
  7. METOPROLOL [Concomitant]
     Active Substance: METOPROLOL
  8. PERCOCET [Concomitant]
     Active Substance: ACETAMINOPHEN\OXYCODONE HYDROCHLORIDE
  9. XARELTO [Concomitant]
     Active Substance: RIVAROXABAN

REACTIONS (3)
  - Nausea [None]
  - Vomiting [None]
  - Therapy change [None]

NARRATIVE: CASE EVENT DATE: 20211004
